FAERS Safety Report 16095454 (Version 1)
Quarter: 2019Q1

REPORT INFORMATION
  Report Type: Spontaneous
  Country: TR (occurrence: TR)
  Receive Date: 20190320
  Receipt Date: 20190320
  Transmission Date: 20190418
  Serious: Yes (Hospitalization)
  Sender: FDA-Public Use
  Company Number: TR-TOLMAR, INC.-TOLG20192184

PATIENT
  Age: 15 Year
  Sex: Male

DRUGS (2)
  1. LEVETIRACETAM. [Suspect]
     Active Substance: LEVETIRACETAM
     Dosage: 20 MG/KG/D
     Route: 065
  2. LEVETIRACETAM. [Suspect]
     Active Substance: LEVETIRACETAM
     Indication: GENERALISED TONIC-CLONIC SEIZURE
     Dosage: INCREASED TO 40 MG/KG/D
     Route: 065

REACTIONS (12)
  - Mania [Recovered/Resolved]
  - Insomnia [Recovered/Resolved]
  - Flight of ideas [Recovered/Resolved]
  - Grandiosity [Recovered/Resolved]
  - Energy increased [Recovered/Resolved]
  - Restlessness [Recovered/Resolved]
  - Irritability [Recovered/Resolved]
  - Distractibility [Recovered/Resolved]
  - Logorrhoea [Recovered/Resolved]
  - Tangentiality [Recovered/Resolved]
  - Loose associations [Recovered/Resolved]
  - Agitation [Recovered/Resolved]
